FAERS Safety Report 8213304-1 (Version None)
Quarter: 2012Q1

REPORT INFORMATION
  Report Type: 
  Country: None (occurrence: None)
  Receive Date: 20120315
  Receipt Date: 20120306
  Transmission Date: 20120608
  Serious: Yes (Hospitalization, Other)
  Sender: FDA-Public Use
  Company Number: PHHY2012AT009611

PATIENT
  Age: 56 Year
  Sex: Male
  Weight: 72 kg

DRUGS (8)
  1. LIDAPRIM [Concomitant]
     Dosage: 1/2 ON MONDAY, TUESDAY, AND WEDNESDAY
     Route: 048
  2. ISOPTIN [Concomitant]
     Dosage: 120 MG, DAILY
     Route: 048
  3. NEXIUM [Concomitant]
     Dosage: 20 MG, DAILY
     Route: 048
  4. ALLOSTAD [Concomitant]
     Dosage: 300 MG, DAILY
  5. PROGRAF [Concomitant]
     Dosage: 0.5 MG, BID
     Route: 048
     Dates: start: 20040101
  6. STEROIDS [Concomitant]
  7. PREDNISOLONE [Concomitant]
     Dosage: 5 MG, DAILY
     Route: 048
     Dates: start: 20040101
  8. MYFORTIC [Suspect]
     Indication: LUNG TRANSPLANT
     Dosage: 360 MG, BID
     Dates: start: 20040101

REACTIONS (18)
  - ACQUIRED DIAPHRAGMATIC EVENTRATION [None]
  - HAEMOGLOBIN DECREASED [None]
  - WEIGHT DECREASED [None]
  - BLOOD UREA INCREASED [None]
  - TONGUE NEOPLASM BENIGN [None]
  - DIARRHOEA [None]
  - BLOOD MAGNESIUM DECREASED [None]
  - BLOOD CHLORIDE INCREASED [None]
  - BLOOD PHOSPHORUS DECREASED [None]
  - BLOOD CREATININE INCREASED [None]
  - OSTEOPOROSIS [None]
  - MONOCYTE COUNT INCREASED [None]
  - MEAN CELL HAEMOGLOBIN CONCENTRATION DECREASED [None]
  - RED BLOOD CELL COUNT DECREASED [None]
  - THROMBOPHLEBITIS SUPERFICIAL [None]
  - PLEURAL EFFUSION [None]
  - HAEMATOCRIT DECREASED [None]
  - BLOOD CALCIUM DECREASED [None]
